FAERS Safety Report 13269920 (Version 2)
Quarter: 2017Q1

REPORT INFORMATION
  Report Type: Spontaneous
  Country: DE (occurrence: DE)
  Receive Date: 20170224
  Receipt Date: 20170310
  Transmission Date: 20170428
  Serious: Yes (Death, Hospitalization)
  Sender: FDA-Public Use
  Company Number: DE-BAYER-2017-036788

PATIENT
  Age: 75 Year
  Sex: Female

DRUGS (9)
  1. APIXABAN [Suspect]
     Active Substance: APIXABAN
     Indication: CEREBROVASCULAR ACCIDENT PROPHYLAXIS
     Dosage: 5 MG, BID
     Route: 048
  2. ASPIRIN 100 MG [Suspect]
     Active Substance: ASPIRIN
     Indication: CORONARY ARTERY DISEASE
     Dosage: 100 MG, UNK
     Route: 048
     Dates: start: 20160525, end: 20161108
  3. VALSARTAN. [Concomitant]
     Active Substance: VALSARTAN
  4. APIXABAN [Suspect]
     Active Substance: APIXABAN
     Indication: ATRIAL FIBRILLATION
     Dosage: 2.5 MG, BID
     Route: 065
     Dates: start: 20161112
  5. BISOPROLOL [Concomitant]
     Active Substance: BISOPROLOL
  6. SIMVASTATIN. [Concomitant]
     Active Substance: SIMVASTATIN
  7. ALLOPURINOL. [Concomitant]
     Active Substance: ALLOPURINOL
  8. TORASEMIDE [Concomitant]
     Active Substance: TORSEMIDE
  9. APIXABAN [Suspect]
     Active Substance: APIXABAN
     Indication: ANTICOAGULANT THERAPY
     Dosage: 5 MG, BID
     Route: 048
     Dates: start: 20160525

REACTIONS (5)
  - Labelled drug-drug interaction medication error [Fatal]
  - Drug administration error [Fatal]
  - Off label use [None]
  - Compartment syndrome [Fatal]
  - Haematoma [Fatal]

NARRATIVE: CASE EVENT DATE: 20161107
